FAERS Safety Report 8371712-2 (Version None)
Quarter: 2012Q2

REPORT INFORMATION
  Report Type: 
  Country: None (occurrence: None)
  Receive Date: 20120518
  Receipt Date: 20120503
  Transmission Date: 20120825
  Serious: Yes (Other)
  Sender: FDA-Public Use
  Company Number: BR-ROCHE-1065782

PATIENT
  Sex: Female
  Weight: 56 kg

DRUGS (5)
  1. EPOGEN [Concomitant]
     Indication: ANAEMIA
  2. PEGASYS [Suspect]
     Dates: start: 20120101
  3. VICTRELIS [Suspect]
     Indication: HEPATITIS C
     Route: 048
     Dates: start: 20120101
  4. NEXIUM [Concomitant]
     Dates: start: 20120101
  5. PEGASYS [Suspect]
     Indication: HEPATITIS C
     Dates: start: 20110101

REACTIONS (8)
  - HEPATITIS C [None]
  - BLOOD PRESSURE DECREASED [None]
  - PAIN [None]
  - DYSGEUSIA [None]
  - ANAEMIA [None]
  - DIZZINESS [None]
  - NAUSEA [None]
  - DIARRHOEA [None]
